FAERS Safety Report 19139030 (Version 3)
Quarter: 2025Q1

REPORT INFORMATION
  Report Type: Spontaneous
  Country: DE (occurrence: DE)
  Receive Date: 20210415
  Receipt Date: 20250331
  Transmission Date: 20250408
  Serious: Yes (Death, Life-Threatening, Hospitalization, Other)
  Sender: ALKEM
  Company Number: None

PATIENT
  Age: 55 Year
  Sex: Female
  Weight: 70 kg

DRUGS (6)
  1. LINEZOLID [Suspect]
     Active Substance: LINEZOLID
     Indication: Enterococcal infection
     Dosage: 1200 MILLIGRAM, QD (EVERY 1 DAY) (FILM-COATED TABLET)
     Route: 048
     Dates: start: 20210128, end: 20210309
  2. LINEZOLID [Suspect]
     Active Substance: LINEZOLID
     Indication: Osteomyelitis
  3. LINEZOLID [Suspect]
     Active Substance: LINEZOLID
     Indication: Wound infection bacterial
  4. CLINDAMYCIN [Concomitant]
     Active Substance: CLINDAMYCIN
     Indication: Staphylococcal bacteraemia
     Dosage: 2700 MILLIGRAM, QD (EVERY 1 DAY)
     Route: 065
     Dates: start: 20210122, end: 20210128
  5. MEROPENEM [Concomitant]
     Active Substance: MEROPENEM
     Indication: Necrotising fasciitis
     Dosage: 1.5 GRAM, QD
     Route: 065
     Dates: start: 20201210, end: 20201220
  6. MEROPENEM [Concomitant]
     Active Substance: MEROPENEM
     Indication: Decubitus ulcer
     Route: 065
     Dates: start: 20210309, end: 20210310

REACTIONS (10)
  - Metabolic acidosis [Fatal]
  - Lactic acidosis [Fatal]
  - Anaemia [Fatal]
  - Circulatory collapse [Fatal]
  - Respiratory failure [Fatal]
  - Renal failure [Fatal]
  - Multiple organ dysfunction syndrome [Fatal]
  - Escherichia sepsis [Fatal]
  - Oliguria [Fatal]
  - Thrombocytopenia [Recovering/Resolving]

NARRATIVE: CASE EVENT DATE: 20210307
